FAERS Safety Report 7754491-9 (Version None)
Quarter: 2011Q3

REPORT INFORMATION
  Report Type: 
  Country: None (occurrence: None)
  Receive Date: 20110915
  Receipt Date: 20110905
  Transmission Date: 20111222
  Serious: Yes (Hospitalization)
  Sender: FDA-Public Use
  Company Number: BR-US-EMD SERONO, INC.-7082025

PATIENT
  Sex: Female

DRUGS (1)
  1. REBIF [Suspect]
     Indication: RELAPSING-REMITTING MULTIPLE SCLEROSIS
     Dates: start: 20070116

REACTIONS (5)
  - OVARIAN CYST [None]
  - EXOSTOSIS [None]
  - PAIN IN EXTREMITY [None]
  - ENDOMETRIOSIS [None]
  - LEIOMYOMA [None]
